FAERS Safety Report 4290266-3 (Version None)
Quarter: 2004Q1

REPORT INFORMATION
  Report Type: 
  Country: None (occurrence: None)
  Receive Date: 20040126
  Receipt Date: 20031104
  Transmission Date: 20041129
  Serious: No
  Sender: FDA-Public Use
  Company Number: USA030435058

PATIENT
  Age: 59 Year
  Sex: Female
  Weight: 40 kg

DRUGS (5)
  1. FORTEO [Suspect]
     Indication: OSTEOPOROSIS
     Dosage: 20 UG/DAY
     Dates: start: 20030401
  2. LISINOPRIL [Concomitant]
  3. NEXIUM [Concomitant]
  4. OS-CAL [Concomitant]
  5. MULTIVITAMIN [Concomitant]

REACTIONS (3)
  - HYPERTENSION [None]
  - INJECTION SITE ERYTHEMA [None]
  - INJECTION SITE HAEMORRHAGE [None]
